FAERS Safety Report 18952203 (Version 2)
Quarter: 2021Q1

REPORT INFORMATION
  Report Type: Spontaneous
  Country: CA (occurrence: CA)
  Receive Date: 20210301
  Receipt Date: 20210317
  Transmission Date: 20210420
  Serious: Yes (Other)
  Sender: FDA-Public Use
  Company Number: CA-BAUSCH-BL-2021-005940

PATIENT
  Age: 49 Year
  Sex: Female

DRUGS (10)
  1. SEROQUEL [Interacting]
     Active Substance: QUETIAPINE FUMARATE
     Indication: ANXIETY
  2. PAROXETINE. [Interacting]
     Active Substance: PAROXETINE
     Indication: ANXIETY
  3. DIAZEPAM. [Suspect]
     Active Substance: DIAZEPAM
     Indication: PREOPERATIVE CARE
     Dosage: SIXTY MINUTES PREOPERATIVELY
     Route: 065
  4. CLONAZEPAM. [Interacting]
     Active Substance: CLONAZEPAM
     Indication: DEPRESSION
     Route: 065
  5. CLONAZEPAM. [Interacting]
     Active Substance: CLONAZEPAM
     Indication: ANXIETY
     Route: 065
  6. SEROQUEL [Interacting]
     Active Substance: QUETIAPINE FUMARATE
     Indication: DEPRESSION
     Route: 065
  7. METHYLENE BLUE. [Interacting]
     Active Substance: METHYLENE BLUE
     Indication: HYPOTENSION
     Dosage: 1 MG/KG X 2 DOSE
     Route: 065
  8. FENTANYL. [Interacting]
     Active Substance: FENTANYL
     Dosage: INTERMITTENT BOLUS, TOTAL DOSE 13 MG/KG
     Route: 065
  9. FENTANYL. [Interacting]
     Active Substance: FENTANYL
     Indication: ANAESTHESIA
     Route: 065
  10. PAROXETINE. [Interacting]
     Active Substance: PAROXETINE
     Indication: DEPRESSION
     Route: 065

REACTIONS (2)
  - Serotonin syndrome [Recovered/Resolved]
  - Drug interaction [Unknown]
